FAERS Safety Report 9265881 (Version 2)
Quarter: 2015Q4

REPORT INFORMATION
  Report Type: Spontaneous
  Country: US (occurrence: US)
  Receive Date: 20130501
  Receipt Date: 20151210
  Transmission Date: 20160305
  Serious: Yes (Other)
  Sender: FDA-Public Use
  Company Number: US-ASTRAZENECA-2011SE61551

PATIENT
  Age: 609 Month
  Sex: Male

DRUGS (19)
  1. COMPLERA [Concomitant]
     Active Substance: EMTRICITABINE\RILPIVIRINE HYDROCHLORIDE\TENOFOVIR DISOPROXIL FUMARATE
     Dosage: EMTRICITABINE 200MG, RILPIVIRINE 25MG, TENOFOVIR DISOPROXIL FUMARATE 300MG, 1 TAB
     Route: 048
  2. CICLESONIDE [Concomitant]
     Active Substance: CICLESONIDE
  3. MULTI OMEGA 369 [Concomitant]
     Dosage: FLAX, BORAGE AND FISH
  4. NEXIUM [Suspect]
     Active Substance: ESOMEPRAZOLE MAGNESIUM
     Indication: GASTROOESOPHAGEAL REFLUX DISEASE
     Dosage: GOING OFF AND ON FOR YEARS
     Route: 048
  5. FOLIC ACID. [Concomitant]
     Active Substance: FOLIC ACID
  6. ACULAR EYE DROPS [Concomitant]
     Indication: PRURITUS
  7. NEXIUM [Suspect]
     Active Substance: ESOMEPRAZOLE MAGNESIUM
     Indication: GASTROOESOPHAGEAL REFLUX DISEASE
     Route: 048
     Dates: start: 1990
  8. CELEXA [Concomitant]
     Active Substance: CITALOPRAM HYDROBROMIDE
  9. ATIVAN [Concomitant]
     Active Substance: LORAZEPAM
  10. LUNESTA [Concomitant]
     Active Substance: ESZOPICLONE
  11. NIACIN. [Concomitant]
     Active Substance: NIACIN
     Indication: BLOOD CHOLESTEROL ABNORMAL
  12. ANDROGEL [Concomitant]
     Active Substance: TESTOSTERONE
  13. LOMOTIL [Concomitant]
     Active Substance: ATROPINE SULFATE\DIPHENOXYLATE HYDROCHLORIDE
     Indication: DIARRHOEA
  14. ACULAR EYE DROPS [Concomitant]
     Indication: DRY EYE
  15. CALAN SR [Concomitant]
     Active Substance: VERAPAMIL HYDROCHLORIDE
  16. EXELON [Concomitant]
     Active Substance: RIVASTIGMINE TARTRATE
  17. NAMENDA XR [Concomitant]
     Active Substance: MEMANTINE HYDROCHLORIDE
  18. ZOVIRAX [Concomitant]
     Active Substance: ACYCLOVIR
  19. VITAMIN D3 [Concomitant]
     Active Substance: CHOLECALCIFEROL

REACTIONS (5)
  - Drug effect delayed [Unknown]
  - Nasopharyngitis [Unknown]
  - Sinusitis [Unknown]
  - Multiple allergies [Unknown]
  - HIV test positive [Unknown]

NARRATIVE: CASE EVENT DATE: 199308
